FAERS Safety Report 4545139-5 (Version None)
Quarter: 2004Q4

REPORT INFORMATION
  Report Type: 
  Country: None (occurrence: None)
  Receive Date: 20041222
  Receipt Date: 20041015
  Transmission Date: 20050328
  Serious: Yes (Hospitalization, Other)
  Sender: FDA-Public Use
  Company Number: USA041080988

PATIENT
  Age: 15 Year
  Sex: Male

DRUGS (2)
  1. HUMALOG [Suspect]
     Indication: DIABETES MELLITUS
  2. GLUCAGON [Suspect]

REACTIONS (6)
  - AGGRESSION [None]
  - BLOOD GLUCOSE DECREASED [None]
  - HEART RATE ABNORMAL [None]
  - HYPOGLYCAEMIC SEIZURE [None]
  - INCOHERENT [None]
  - SEDATION [None]
